FAERS Safety Report 4638867-4 (Version None)
Quarter: 2005Q2

REPORT INFORMATION
  Report Type: 
  Country: None (occurrence: None)
  Receive Date: 20050415
  Receipt Date: 20050415
  Transmission Date: 20051028
  Serious: Yes (Disabling, Other)
  Sender: FDA-Public Use
  Company Number: None

PATIENT

DRUGS (2)
  1. XANAX [Suspect]
     Indication: GENERALISED ANXIETY DISORDER
     Dosage: 2 MG PO
     Route: 048
  2. XANAX [Suspect]
     Indication: PANIC ATTACK
     Dosage: 2 MG PO
     Route: 048

REACTIONS (2)
  - DRUG EFFECT DECREASED [None]
  - PHARMACEUTICAL PRODUCT COMPLAINT [None]
